FAERS Safety Report 4714576-8 (Version None)
Quarter: 2005Q3

REPORT INFORMATION
  Report Type: 
  Country: None (occurrence: None)
  Receive Date: 20050714
  Receipt Date: 20050310
  Transmission Date: 20060218
  Serious: Yes (Hospitalization)
  Sender: FDA-Public Use
  Company Number: US-MERCK-0503USA02101

PATIENT
  Age: 53 Year
  Sex: Female
  Weight: 95 kg

DRUGS (7)
  1. VIOXX [Suspect]
     Indication: ARTHRALGIA
     Route: 048
     Dates: start: 20000101, end: 20040101
  2. VIOXX [Suspect]
     Route: 048
     Dates: start: 20000101, end: 20040101
  3. VIOXX [Suspect]
     Indication: ARTHRITIS
     Route: 048
     Dates: start: 20000101, end: 20040101
  4. VIOXX [Suspect]
     Route: 048
     Dates: start: 20000101, end: 20040101
  5. NEXIUM [Concomitant]
     Route: 065
  6. TOPROL-XL [Concomitant]
     Route: 065
  7. VITAMINS (UNSPECIFIED) [Concomitant]
     Route: 065

REACTIONS (36)
  - ACUTE MYOCARDIAL INFARCTION [None]
  - ANGINA UNSTABLE [None]
  - ANXIETY [None]
  - BLOOD CHOLESTEROL INCREASED [None]
  - CERVICAL STRICTURE [None]
  - CERVICITIS [None]
  - CHOLECYSTITIS [None]
  - CORONARY ARTERY ATHEROSCLEROSIS [None]
  - CORONARY ARTERY DISEASE [None]
  - COSTOCHONDRITIS [None]
  - DEPRESSION [None]
  - DYSPNOEA EXERTIONAL [None]
  - EMOTIONAL DISTRESS [None]
  - ESSENTIAL HYPERTENSION [None]
  - FATIGUE [None]
  - GANGLION [None]
  - HIATUS HERNIA [None]
  - HYPERLIPIDAEMIA [None]
  - HYPOVOLAEMIA [None]
  - ILEUS [None]
  - INGROWING NAIL [None]
  - INTERVERTEBRAL DISC DEGENERATION [None]
  - LUMBAR RADICULOPATHY [None]
  - MUSCLE SPASMS [None]
  - MYOCARDIAL INFARCTION [None]
  - NEURALGIA [None]
  - NEURITIS [None]
  - OEDEMA PERIPHERAL [None]
  - OVARIAN CYST [None]
  - PAIN IN EXTREMITY [None]
  - PANIC ATTACK [None]
  - POSTMENOPAUSAL HAEMORRHAGE [None]
  - RESPIRATORY FAILURE [None]
  - SPINAL COLUMN STENOSIS [None]
  - SPONDYLOLISTHESIS [None]
  - UTERINE LEIOMYOMA [None]
